FAERS Safety Report 7953921-7 (Version None)
Quarter: 2011Q4

REPORT INFORMATION
  Report Type: 
  Country: None (occurrence: None)
  Receive Date: 20111202
  Receipt Date: 20111124
  Transmission Date: 20120403
  Serious: Yes (Death, Hospitalization)
  Sender: FDA-Public Use
  Company Number: CH-TEVA-311267ISR

PATIENT
  Sex: Male
  Weight: 70 kg

DRUGS (18)
  1. MAGNESIOCARD [Concomitant]
     Indication: MUSCLE SPASMS
     Route: 048
     Dates: start: 20110525
  2. ACIDUM ACETYLSALICYLICUM [Concomitant]
     Indication: THROMBOSIS PROPHYLAXIS
  3. TAMSULOSIN HYDROCHLORIDUM [Concomitant]
     Indication: BENIGN PROSTATIC HYPERPLASIA
     Dosage: .4 MILLIGRAM;
     Route: 048
     Dates: start: 20030725
  4. LEVOCETIRIZINE DIHYDROCHLORIDE [Concomitant]
     Indication: RASH
     Route: 048
     Dates: start: 20090819
  5. ACETAMINOPHEN [Concomitant]
     Indication: BACK PAIN
     Route: 048
     Dates: start: 20110819
  6. VALTREX [Concomitant]
     Dosage: 9 GRAM;
     Route: 048
     Dates: start: 20110923
  7. DEXAMETHASONE [Suspect]
     Indication: MULTIPLE MYELOMA
     Dosage: 20 MILLIGRAM;
     Dates: start: 20090525
  8. ACIDUM ACETYLSALICYLICUM [Concomitant]
     Indication: CEREBROVASCULAR DISORDER
     Dosage: 100 MILLIGRAM;
     Route: 048
     Dates: start: 20030725
  9. ACETAMINOPHEN [Concomitant]
     Indication: MUSCULOSKELETAL PAIN
     Route: 048
     Dates: start: 20110525
  10. LEVOFLOXACIN [Concomitant]
     Indication: LUNG INFECTION
     Dosage: 2000 MILLIGRAM;
     Route: 048
     Dates: start: 20111101
  11. ATORVASTATIN CALCIUM [Concomitant]
     Indication: HYPERCHOLESTEROLAEMIA
     Dosage: 40 MILLIGRAM;
     Route: 048
     Dates: start: 20070727
  12. LENALIDOMIDE [Suspect]
     Dosage: 25 MILLIGRAM;
     Route: 048
     Dates: start: 20100202
  13. PANTOPRAZOLE SODIUM [Concomitant]
     Indication: PROPHYLAXIS
     Route: 048
     Dates: start: 20101207
  14. LENALIDOMIDE [Suspect]
     Indication: MULTIPLE MYELOMA
     Dosage: 10 MILLIGRAM;
     Route: 048
     Dates: start: 20090525
  15. LENALIDOMIDE [Suspect]
     Dosage: 25 MILLIGRAM;
     Route: 048
     Dates: start: 20111021, end: 20111103
  16. TRAMADOL HCL [Concomitant]
     Indication: BACK PAIN
     Route: 048
     Dates: start: 20110819
  17. ACIDUM ZOLEDRONICUM [Concomitant]
     Indication: OSTEOLYSIS
     Dosage: .0044 MILLIGRAM;
     Route: 042
     Dates: start: 20090422
  18. DEXAMETHASONE [Suspect]
     Dosage: 20 MILLIGRAM;
     Dates: start: 20111021, end: 20111103

REACTIONS (2)
  - SUDDEN DEATH [None]
  - LUNG INFECTION [None]
